FAERS Safety Report 23454055 (Version 2)
Quarter: 2024Q1

REPORT INFORMATION
  Report Type: Report from Study
  Country: US (occurrence: US)
  Receive Date: 20240130
  Receipt Date: 20240215
  Transmission Date: 20240410
  Serious: Yes (Hospitalization, Disabling, Other)
  Sender: FDA-Public Use
  Company Number: US-ABBVIE-5608630

PATIENT
  Sex: Female
  Weight: 54.431 kg

DRUGS (16)
  1. CREON [Suspect]
     Active Substance: PANCRELIPASE AMYLASE\PANCRELIPASE LIPASE\PANCRELIPASE PROTEASE
     Indication: Pancreatic failure
     Dosage: FORM STRENGTH 24000 UNIT?FREQUENCY: SEE AED
     Route: 048
     Dates: start: 1996, end: 1996
  2. CREON [Suspect]
     Active Substance: PANCRELIPASE AMYLASE\PANCRELIPASE LIPASE\PANCRELIPASE PROTEASE
     Indication: Pancreatic failure
     Dosage: FORM STRENGTH 24000 UNIT?FREQUENCY: SEE AED
     Route: 048
     Dates: start: 1998
  3. PREVACID [Concomitant]
     Active Substance: LANSOPRAZOLE
     Indication: Gastrooesophageal reflux disease
  4. VALIUM [Concomitant]
     Active Substance: DIAZEPAM
     Indication: Muscle relaxant therapy
  5. VITAMIN D [Concomitant]
     Active Substance: VITAMIN D NOS
     Indication: Product used for unknown indication
  6. PERCOCET [Concomitant]
     Active Substance: ACETAMINOPHEN\OXYCODONE HYDROCHLORIDE
     Indication: Pain
  7. PREDNISONE [Concomitant]
     Active Substance: PREDNISONE
     Indication: Systemic lupus erythematosus
  8. ORENCIA [Suspect]
     Active Substance: ABATACEPT
     Indication: Systemic lupus erythematosus
     Route: 042
     Dates: start: 202304, end: 202304
  9. ZYRTEC [Concomitant]
     Active Substance: CETIRIZINE HYDROCHLORIDE
     Indication: Seasonal allergy
  10. CHROMIUM [Concomitant]
     Active Substance: CHROMIC CHLORIDE\CHROMIUM
     Indication: Product used for unknown indication
  11. MAGNESIUM [Concomitant]
     Active Substance: MAGNESIUM
     Indication: Product used for unknown indication
  12. CANNABIS SATIVA SUBSP. INDICA TOP [Concomitant]
     Active Substance: CANNABIS SATIVA SUBSP. INDICA TOP
     Indication: Pain
     Dosage: MEDICAL
  13. METOPROLOL [Concomitant]
     Active Substance: METOPROLOL
     Indication: Palpitations
  14. PREMARIN [Concomitant]
     Active Substance: ESTROGENS, CONJUGATED
     Indication: Product used for unknown indication
  15. VALSARTAN [Concomitant]
     Active Substance: VALSARTAN
     Indication: Hypertension
  16. PRAVASTATIN [Concomitant]
     Active Substance: PRAVASTATIN
     Indication: Prophylaxis

REACTIONS (60)
  - Systemic lupus erythematosus [Not Recovered/Not Resolved]
  - Coronary artery occlusion [Recovering/Resolving]
  - Diabetes mellitus [Recovering/Resolving]
  - Bacterial infection [Recovered/Resolved]
  - Pancreatic stent placement [Unknown]
  - Skin fragility [Not Recovered/Not Resolved]
  - Spinal operation [Unknown]
  - Movement disorder [Recovered/Resolved]
  - Neck surgery [Unknown]
  - Dyspnoea [Recovering/Resolving]
  - Gastrointestinal tube insertion [Unknown]
  - Osteoporosis [Not Recovered/Not Resolved]
  - Feeding disorder [Recovered/Resolved]
  - Dry eye [Recovering/Resolving]
  - Osteoarthritis [Recovered/Resolved]
  - Cataract [Recovered/Resolved]
  - Thrombosis [Recovered/Resolved]
  - Skin discolouration [Recovering/Resolving]
  - Steatorrhoea [Recovered/Resolved]
  - Intestinal cyst [Recovered/Resolved]
  - Disability [Not Recovered/Not Resolved]
  - Peripheral swelling [Recovering/Resolving]
  - Incarcerated hiatus hernia [Recovered/Resolved]
  - Pancreatic leak [Recovered/Resolved]
  - Insomnia [Recovered/Resolved]
  - Lipoma [Not Recovered/Not Resolved]
  - Rib fracture [Recovered/Resolved]
  - Abdominal pain [Recovered/Resolved]
  - Purulent discharge [Recovering/Resolving]
  - Pancreatic disorder [Recovered/Resolved]
  - Raynaud^s phenomenon [Not Recovered/Not Resolved]
  - Rotator cuff syndrome [Recovered/Resolved]
  - Laboratory test abnormal [Not Recovered/Not Resolved]
  - Anaemia [Not Recovered/Not Resolved]
  - Osteoarthritis [Recovering/Resolving]
  - Intervertebral disc degeneration [Recovered/Resolved]
  - Feeding disorder [Recovered/Resolved]
  - Rotator cuff syndrome [Not Recovered/Not Resolved]
  - Intervertebral disc degeneration [Recovered/Resolved]
  - Pancreatitis relapsing [Recovered/Resolved]
  - Lipoma [Recovered/Resolved]
  - Meniscus injury [Recovered/Resolved]
  - Nausea [Recovered/Resolved]
  - Sjogren^s syndrome [Recovering/Resolving]
  - Intervertebral disc injury [Recovered/Resolved]
  - Procedural complication [Recovering/Resolving]
  - Diarrhoea [Recovered/Resolved]
  - Thrombosis [Recovered/Resolved]
  - Exostosis [Recovered/Resolved]
  - Intervertebral disc degeneration [Recovered/Resolved]
  - Pancreatic pseudocyst [Recovered/Resolved]
  - Sleep apnoea syndrome [Recovering/Resolving]
  - Clostridium difficile infection [Recovered/Resolved]
  - Chondropathy [Recovered/Resolved]
  - Abdominal infection [Recovered/Resolved]
  - Meniscus injury [Recovered/Resolved]
  - Gait inability [Recovering/Resolving]
  - Medical device implantation [Unknown]
  - Limb injury [Recovering/Resolving]
  - Osteoarthritis [Recovered/Resolved]

NARRATIVE: CASE EVENT DATE: 19960101
